FAERS Safety Report 4776350-6 (Version None)
Quarter: 2005Q3

REPORT INFORMATION
  Report Type: 
  Country: None (occurrence: None)
  Receive Date: 20050921
  Receipt Date: 20050912
  Transmission Date: 20060218
  Serious: Yes (Hospitalization)
  Sender: FDA-Public Use
  Company Number: 2005125954

PATIENT
  Age: 65 Year
  Sex: Female

DRUGS (1)
  1. AZITHROMYCIN [Suspect]
     Indication: UPPER RESPIRATORY TRACT INFECTION
     Dosage: 500 MG (500 MG, QD, INTERVAL: EVERY DAY), ORAL
     Route: 048
     Dates: start: 20050101, end: 20050101

REACTIONS (1)
  - TENDON RUPTURE [None]
